FAERS Safety Report 20541046 (Version 1)
Quarter: 2022Q1

REPORT INFORMATION
  Report Type: Report from Study
  Country: JP (occurrence: JP)
  Receive Date: 20220302
  Receipt Date: 20220302
  Transmission Date: 20220423
  Serious: Yes (Other)
  Sender: FDA-Public Use
  Company Number: JP-BAYER-2021A225016

PATIENT
  Age: 73 Year
  Sex: Female

DRUGS (2)
  1. RIVAROXABAN [Interacting]
     Active Substance: RIVAROXABAN
     Indication: Atrial fibrillation
     Route: 048
  2. HEPARIN [Interacting]
     Active Substance: HEPARIN SODIUM
     Dosage: 5000 IU

REACTIONS (2)
  - Pericardial haemorrhage [Unknown]
  - Labelled drug-drug interaction medication error [Unknown]
